FAERS Safety Report 4443059-8 (Version None)
Quarter: 2004Q3

REPORT INFORMATION
  Report Type: 
  Country: None (occurrence: None)
  Receive Date: 20040903
  Receipt Date: 20040628
  Transmission Date: 20050211
  Serious: Yes (Other)
  Sender: FDA-Public Use
  Company Number: 2004UW13435

PATIENT
  Age: 58 Year
  Sex: Male

DRUGS (8)
  1. CRESTOR [Suspect]
     Dosage: 5 MG QD PO
     Route: 048
  2. AMBIEN [Concomitant]
  3. ASPIRIN [Concomitant]
  4. NORVASC [Concomitant]
  5. CELEBREX [Concomitant]
  6. CATAPRES [Concomitant]
  7. PROZAC [Concomitant]
  8. TOPROL-XL [Concomitant]

REACTIONS (2)
  - BLOOD TRIGLYCERIDES INCREASED [None]
  - HIGH DENSITY LIPOPROTEIN DECREASED [None]
